FAERS Safety Report 5297581-5 (Version None)
Quarter: 2007Q2

REPORT INFORMATION
  Report Type: 
  Country: None (occurrence: None)
  Receive Date: 20070416
  Receipt Date: 20070403
  Transmission Date: 20071010
  Serious: No
  Sender: FDA-Public Use
  Company Number: DE-AVENTIS-200710375DE

PATIENT
  Age: 33 Year
  Sex: Female

DRUGS (1)
  1. ARAVA [Suspect]
     Dosage: DOSE: NOT REPORTED20
     Route: 048
     Dates: end: 20070101

REACTIONS (1)
  - DRUG EXPOSURE DURING PREGNANCY [None]
